FAERS Safety Report 4652516-0 (Version None)
Quarter: 2005Q2

REPORT INFORMATION
  Report Type: 
  Country: None (occurrence: None)
  Receive Date: 20050408
  Receipt Date: 20041217
  Transmission Date: 20051028
  Serious: No
  Sender: FDA-Public Use
  Company Number: 236090K04USA

PATIENT
  Age: 61 Year
  Sex: Female

DRUGS (7)
  1. REBIF [Suspect]
     Indication: MULTIPLE SCLEROSIS
     Dosage: 22 MCG, 3 IN 1 WEEKS, SUBCUTANEOUS;  44 MCG, 3 IN 1 WEEKS, SUBCUTANEOUS
     Route: 058
     Dates: start: 20041110, end: 20041228
  2. REBIF [Suspect]
     Indication: MULTIPLE SCLEROSIS
     Dosage: 22 MCG, 3 IN 1 WEEKS, SUBCUTANEOUS;  44 MCG, 3 IN 1 WEEKS, SUBCUTANEOUS
     Route: 058
     Dates: start: 20041229, end: 20050113
  3. TYLENOL [Concomitant]
  4. MEDICATION FOR GLAUCOMA (ALL OTHER THERAPEUTIC PRODUCTS) [Concomitant]
  5. MEDICATION FOR CONGENITAL HEART VALVE DEFECT (ALL OTHER THERAPEUTIC PR [Concomitant]
  6. BETA BLOCKER (BETA BLOCKING AGENTS) [Concomitant]
  7. SULFA DRUG (ALL OTHER THERAPEUTIC PRODUCTS) [Concomitant]

REACTIONS (6)
  - CONFUSIONAL STATE [None]
  - DIARRHOEA [None]
  - HEADACHE [None]
  - NAUSEA [None]
  - SOMNOLENCE [None]
  - VOMITING [None]
